FAERS Safety Report 11329352 (Version 2)
Quarter: 2017Q2

REPORT INFORMATION
  Report Type: Spontaneous
  Country: US (occurrence: US)
  Receive Date: 20150803
  Receipt Date: 20170408
  Transmission Date: 20170829
  Serious: Yes (Hospitalization, Other)
  Sender: FDA-Public Use
  Company Number: US-AMGEN-USASP2015077476

PATIENT
  Age: 60 Year
  Sex: Female

DRUGS (4)
  1. MYKIDZ IRON [Concomitant]
     Dosage: UNK
  2. NEXIUM [Concomitant]
     Active Substance: ESOMEPRAZOLE MAGNESIUM
     Dosage: UNK
  3. ENBREL [Suspect]
     Active Substance: ETANERCEPT
     Indication: RHEUMATOID ARTHRITIS
     Dosage: 25 MG, 2 TIMES/WK
     Route: 058
     Dates: start: 201412
  4. FOLIC ACID. [Concomitant]
     Active Substance: FOLIC ACID
     Dosage: UNK

REACTIONS (6)
  - Brain oedema [Unknown]
  - Intracranial aneurysm [Recovering/Resolving]
  - Cerebrovascular accident [Recovering/Resolving]
  - Brain neoplasm [Recovering/Resolving]
  - Malaise [Unknown]
  - Amnesia [Recovering/Resolving]

NARRATIVE: CASE EVENT DATE: 201507
